FAERS Safety Report 10945626 (Version 1)
Quarter: 2015Q1

REPORT INFORMATION
  Report Type: Spontaneous
  Country: US (occurrence: None)
  Receive Date: 20150212
  Receipt Date: 20150212
  Transmission Date: 20150721
  Serious: No
  Sender: FDA-Public Use
  Company Number: TPA2011A02134

PATIENT
  Age: 83 Year
  Sex: Male
  Weight: 70.31 kg

DRUGS (2)
  1. HOMEOPATHIC DROPS (ALL OTHER THERAPEUTIC PRODUCTS) [Concomitant]
  2. ULORIC [Suspect]
     Active Substance: FEBUXOSTAT
     Indication: GOUT
     Route: 048
     Dates: start: 201008, end: 201009

REACTIONS (2)
  - Chest pain [None]
  - Rash [None]
